FAERS Safety Report 5116264-5 (Version None)
Quarter: 2006Q3

REPORT INFORMATION
  Report Type: 
  Country: None (occurrence: None)
  Receive Date: 20060927
  Receipt Date: 20060921
  Transmission Date: 20061208
  Serious: Yes (Hospitalization)
  Sender: FDA-Public Use
  Company Number: CH-GLAXOSMITHKLINE-B0439654A

PATIENT
  Age: 80 Year
  Sex: Female
  Weight: 100 kg

DRUGS (6)
  1. AUGMENTIN [Suspect]
     Indication: WOUND INFECTION
     Dosage: 1G THREE TIMES PER DAY
     Route: 048
     Dates: start: 20060511, end: 20060526
  2. RIFAMPICIN [Suspect]
     Indication: WOUND INFECTION
     Dosage: 450MG TWICE PER DAY
     Route: 048
     Dates: start: 20060511, end: 20060526
  3. BENURON [Suspect]
     Indication: ARTHRALGIA
     Dosage: 1G FOUR TIMES PER DAY
     Route: 048
     Dates: start: 20060511, end: 20060526
  4. SINTROM [Concomitant]
     Dosage: 1MG AS REQUIRED
     Route: 048
     Dates: start: 20060411, end: 20060526
  5. EUTHYROX [Concomitant]
     Route: 048
  6. NEXIUM [Concomitant]
     Dosage: 44.5MG PER DAY
     Route: 048

REACTIONS (5)
  - BLOOD ALKALINE PHOSPHATASE INCREASED [None]
  - BLOOD BILIRUBIN INCREASED [None]
  - GAMMA-GLUTAMYLTRANSFERASE INCREASED [None]
  - JAUNDICE HEPATOCELLULAR [None]
  - TRANSAMINASES INCREASED [None]
